FAERS Safety Report 23158072 (Version 3)
Quarter: 2024Q1

REPORT INFORMATION
  Report Type: Report from Study
  Country: MX (occurrence: None)
  Receive Date: 20231108
  Receipt Date: 20240126
  Transmission Date: 20240410
  Serious: Yes (Other)
  Sender: FDA-Public Use
  Company Number: 2023A174685

PATIENT
  Age: 588 Month
  Sex: Male
  Weight: 97 kg

DRUGS (16)
  1. DAPAGLIFLOZIN [Suspect]
     Active Substance: DAPAGLIFLOZIN
     Indication: Cardiac failure
     Route: 048
     Dates: start: 20230101
  2. DAPAGLIFLOZIN [Suspect]
     Active Substance: DAPAGLIFLOZIN
     Indication: Diabetes mellitus
     Route: 048
     Dates: start: 20230101
  3. LINAGLIPTIN [Concomitant]
     Active Substance: LINAGLIPTIN
     Dosage: 1 A DAY
  4. INSULIN NOS [Concomitant]
     Active Substance: INSULIN NOS
     Dosage: 30 UNITS
  5. METOPROLOL [Concomitant]
     Active Substance: METOPROLOL
     Dosage: 1 A DAY
  6. SPIRONOLACTONE [Concomitant]
     Active Substance: SPIRONOLACTONE
     Dosage: 1 A DAY
  7. FUROSEMIDE [Concomitant]
     Active Substance: FUROSEMIDE
     Dosage: 1 A DAY
  8. ENALAPRIL [Concomitant]
     Active Substance: ENALAPRIL
     Dosage: 1 A DAY
  9. CLOPIDOGREL [Concomitant]
     Active Substance: CLOPIDOGREL BISULFATE
     Dosage: 1 A DAY
     Route: 048
  10. DIGOXIN [Concomitant]
     Active Substance: DIGOXIN
     Dosage: WEEKDAY
     Route: 048
  11. ALLOPURINOL [Concomitant]
     Active Substance: ALLOPURINOL
     Route: 048
  12. IRBESARTAN [Concomitant]
     Active Substance: IRBESARTAN
     Route: 048
  13. ATORVASTATIN [Concomitant]
     Active Substance: ATORVASTATIN
     Dosage: TWO IN THE NIGHT
     Route: 048
  14. BRASARTAN [Concomitant]
     Route: 048
  15. BEZAFIBRATE [Concomitant]
     Active Substance: BEZAFIBRATE
     Route: 048
  16. ENDDOL [Concomitant]
     Route: 048

REACTIONS (11)
  - Asphyxia [Unknown]
  - Laboratory test abnormal [Unknown]
  - Blood uric acid increased [Unknown]
  - Blood triglycerides increased [Not Recovered/Not Resolved]
  - Blood glucose increased [Unknown]
  - Dyspnoea [Not Recovered/Not Resolved]
  - Obstructive airways disorder [Not Recovered/Not Resolved]
  - Arrhythmia [Recovered/Resolved]
  - Hypotension [Not Recovered/Not Resolved]
  - Nausea [Unknown]
  - Fatigue [Not Recovered/Not Resolved]

NARRATIVE: CASE EVENT DATE: 20230701
